FAERS Safety Report 5067403-6 (Version None)
Quarter: 2006Q3

REPORT INFORMATION
  Report Type: 
  Country: None (occurrence: None)
  Receive Date: 20060727
  Receipt Date: 20060712
  Transmission Date: 20061208
  Serious: Yes (Other)
  Sender: FDA-Public Use
  Company Number: GXKR2006PL03985

PATIENT
  Age: 74 Year
  Sex: Male

DRUGS (3)
  1. AMIODARONE HCL [Suspect]
     Indication: VENTRICULAR FIBRILLATION
  2. TICLOPIDINE HCL [Suspect]
  3. CLOPIDOGREL [Suspect]

REACTIONS (4)
  - CHEST X-RAY ABNORMAL [None]
  - HAEMOPTYSIS [None]
  - ILL-DEFINED DISORDER [None]
  - PULMONARY HAEMORRHAGE [None]
